FAERS Safety Report 17047217 (Version 2)
Quarter: 2020Q1

REPORT INFORMATION
  Report Type: Spontaneous
  Country: IL (occurrence: IL)
  Receive Date: 20191119
  Receipt Date: 20200122
  Transmission Date: 20200409
  Serious: Yes (Death, Hospitalization, Other)
  Sender: FDA-Public Use
  Company Number: IL-ACTELION-A-CH2019-194870

PATIENT
  Age: 68 Year
  Sex: Male

DRUGS (7)
  1. JANUVIA [Concomitant]
     Active Substance: SITAGLIPTIN PHOSPHATE
  2. UPTRAVI [Suspect]
     Active Substance: SELEXIPAG
     Dosage: 200 MCG, BID
     Route: 048
     Dates: start: 20190123
  3. NORMITEN [Concomitant]
     Active Substance: ATENOLOL
  4. UPTRAVI [Suspect]
     Active Substance: SELEXIPAG
     Indication: PULMONARY ARTERIAL HYPERTENSION
     Dosage: 1600 MCG, BID
     Route: 048
     Dates: start: 20190123
  5. VITAMIN D [Concomitant]
     Active Substance: VITAMIN D NOS
  6. UPTRAVI [Suspect]
     Active Substance: SELEXIPAG
     Dosage: 1400 MCG, BID
     Route: 048
  7. SILDENAFIL CITRATE. [Concomitant]
     Active Substance: SILDENAFIL CITRATE

REACTIONS (13)
  - Diarrhoea [Not Recovered/Not Resolved]
  - Blood urea increased [Unknown]
  - Blood alkaline phosphatase increased [Not Recovered/Not Resolved]
  - Pulmonary oedema [Unknown]
  - Weight decreased [Unknown]
  - Pneumonia [Fatal]
  - Blood creatinine increased [Unknown]
  - Septic shock [Fatal]
  - Condition aggravated [Unknown]
  - Blood albumin decreased [Unknown]
  - Blood iron decreased [Not Recovered/Not Resolved]
  - Pulmonary arterial hypertension [Unknown]
  - Dyspnoea [Unknown]

NARRATIVE: CASE EVENT DATE: 2019
